FAERS Safety Report 18794974 (Version 2)
Quarter: 2021Q1

REPORT INFORMATION
  Report Type: Spontaneous
  Country: CN (occurrence: CN)
  Receive Date: 20210127
  Receipt Date: 20210213
  Transmission Date: 20210419
  Serious: Yes (Hospitalization, Other)
  Sender: FDA-Public Use
  Company Number: CN-ABBVIE-21P-035-3747256-00

PATIENT
  Age: 11 Year
  Sex: Female
  Weight: 31.2 kg

DRUGS (1)
  1. ENANTONE LP [Suspect]
     Active Substance: LEUPROLIDE ACETATE
     Indication: PRECOCIOUS PUBERTY
     Dosage: 3.75 MILLIGRAM, QD
     Route: 058
     Dates: start: 20210119

REACTIONS (5)
  - Vomiting [Unknown]
  - Henoch-Schonlein purpura [Not Recovered/Not Resolved]
  - Skin ulcer [Not Recovered/Not Resolved]
  - Melaena [Unknown]
  - Gastrointestinal haemorrhage [Unknown]

NARRATIVE: CASE EVENT DATE: 20210119
